FAERS Safety Report 9772569 (Version 2)
Quarter: 2013Q4

REPORT INFORMATION
  Report Type: Spontaneous
  Country: SE (occurrence: SE)
  Receive Date: 20131219
  Receipt Date: 20131227
  Transmission Date: 20140711
  Serious: Yes (Hospitalization)
  Sender: FDA-Public Use
  Company Number: SE-TEVA-450602ISR

PATIENT
  Age: 16 Year
  Sex: Male

DRUGS (8)
  1. RISPERIDONE [Suspect]
     Indication: BIPOLAR DISORDER
     Dosage: 4 MG/D
     Route: 048
  2. RISPERIDONE [Suspect]
     Indication: ABNORMAL BEHAVIOUR
     Dosage: 4 MG/D
     Route: 048
  3. TOPIRAMATE [Suspect]
     Indication: BIPOLAR DISORDER
     Dosage: 200 MG/D
     Route: 065
  4. TOPIRAMATE [Suspect]
     Indication: ABNORMAL BEHAVIOUR
     Dosage: 200 MG/D
     Route: 065
  5. VENLAFAXINE [Suspect]
     Dosage: 300 MG/D
     Route: 065
  6. ARIPIPRAZOLE [Suspect]
     Indication: BIPOLAR DISORDER
     Dosage: 15 MG/DAY
     Route: 048
  7. ARIPIPRAZOLE [Suspect]
     Indication: ABNORMAL BEHAVIOUR
     Dosage: 15 MG/DAY
     Route: 048
  8. ZONISAMIDE [Suspect]
     Dosage: 400 MG/D

REACTIONS (3)
  - Rhabdomyolysis [Recovering/Resolving]
  - Renal failure acute [Recovering/Resolving]
  - Serotonin syndrome [Recovering/Resolving]
